FAERS Safety Report 10866500 (Version 1)
Quarter: 2015Q1

REPORT INFORMATION
  Report Type: Spontaneous
  Country: US (occurrence: None)
  Receive Date: 20150220
  Receipt Date: 20150220
  Transmission Date: 20150721
  Serious: No
  Sender: FDA-Public Use
  Company Number: None

PATIENT
  Age: 43 Year
  Sex: Female

DRUGS (1)
  1. TRAZODONE [Suspect]
     Active Substance: TRAZODONE HYDROCHLORIDE
     Indication: INSOMNIA
     Dosage: ONE PILL NIGHTLY FOR SLEEP, AT BEDTIME, TAKEN BY MOUTH

REACTIONS (3)
  - Nightmare [None]
  - Condition aggravated [None]
  - Insomnia [None]
